FAERS Safety Report 7383284-X (Version None)
Quarter: 2011Q1

REPORT INFORMATION
  Report Type: 
  Country: None (occurrence: None)
  Receive Date: 20110325
  Receipt Date: 20110325
  Transmission Date: 20110831
  Serious: Yes (Hospitalization)
  Sender: FDA-Public Use
  Company Number: None

PATIENT
  Age: 86 Year
  Sex: Female

DRUGS (9)
  1. VIT C [Concomitant]
  2. TOVIAZ [Concomitant]
  3. GLUCOSAMINE [Concomitant]
  4. PRADAXA [Suspect]
     Indication: ATRIAL FIBRILLATION
     Dosage: 150MG BID PO  RECENT (TOOK 1 DOSE ONLY)
     Route: 048
  5. M.V.I. [Concomitant]
  6. OXYCODONE [Concomitant]
  7. TRAMADOL HCL [Concomitant]
  8. PEPCID [Concomitant]
  9. CEPHALEXIN [Concomitant]

REACTIONS (4)
  - CHEST PAIN [None]
  - MOUTH HAEMORRHAGE [None]
  - AORTIC DISSECTION [None]
  - BACK PAIN [None]
